FAERS Safety Report 13720523 (Version 4)
Quarter: 2017Q4

REPORT INFORMATION
  Report Type: Report from Study
  Country: GB (occurrence: GB)
  Receive Date: 20170706
  Receipt Date: 20171020
  Transmission Date: 20180320
  Serious: Yes (Hospitalization)
  Sender: FDA-Public Use
  Company Number: GB-UCBSA-2017025390

PATIENT
  Sex: Female
  Weight: 72 kg

DRUGS (5)
  1. DOVOBET [Concomitant]
     Active Substance: BETAMETHASONE\CALCIPOTRIENE
     Indication: PSORIASIS
     Dosage: UNK
  2. ETANERCEPT [Suspect]
     Active Substance: ETANERCEPT
     Indication: PSORIASIS
     Dosage: 50 MG, TWICE WEEKLY
     Dates: start: 20151210, end: 20160330
  3. CERTOLIZUMAB PEGOL [Suspect]
     Active Substance: CERTOLIZUMAB PEGOL
     Indication: PSORIASIS
     Dosage: 200 MG, EV 2 WEEKS(QOW)
     Dates: start: 20160331, end: 20161110
  4. MANEVAC [Concomitant]
     Indication: CONSTIPATION
     Dosage: 400 G, AS NEEDED (PRN)
     Dates: start: 201602
  5. HYDROUS [Concomitant]
     Indication: PSORIASIS
     Dosage: UNK
     Route: 061
     Dates: start: 20101123

REACTIONS (1)
  - Haemorrhoidal haemorrhage [Recovered/Resolved]
